FAERS Safety Report 4414123-4 (Version None)
Quarter: 2004Q3

REPORT INFORMATION
  Report Type: 
  Country: None (occurrence: None)
  Receive Date: 20040803
  Receipt Date: 20040727
  Transmission Date: 20050211
  Serious: Yes (Other)
  Sender: FDA-Public Use
  Company Number: FR-BRISTOL-MYERS SQUIBB COMPANY-12652897

PATIENT

DRUGS (7)
  1. EFAVIRENZ [Suspect]
     Indication: HIV INFECTION
  2. DIDANOSINE [Suspect]
     Indication: HIV INFECTION
  3. TENOFOVIR [Suspect]
     Indication: HIV INFECTION
  4. RITONAVIR [Suspect]
     Indication: HIV INFECTION
  5. AMPRENAVIR [Suspect]
     Indication: HIV INFECTION
  6. LOPINAVIR [Suspect]
     Indication: HIV INFECTION
  7. FLUCONAZOLE [Concomitant]

REACTIONS (4)
  - HYPOPHOSPHATAEMIA [None]
  - POLYDIPSIA [None]
  - POLYURIA [None]
  - RENAL TUBULAR DISORDER [None]
